FAERS Safety Report 6854680-1 (Version None)
Quarter: 2010Q3

REPORT INFORMATION
  Report Type: 
  Country: None (occurrence: None)
  Receive Date: 20100717
  Receipt Date: 20080107
  Transmission Date: 20110219
  Serious: Yes (Other)
  Sender: FDA-Public Use
  Company Number: US-PFIZER INC-2008004363

PATIENT
  Age: 60 Year
  Sex: Female
  Weight: 50.8 kg

DRUGS (3)
  1. CHANTIX [Suspect]
     Indication: SMOKING CESSATION THERAPY
     Dates: start: 20071230
  2. OTHER RESPIRATORY SYSTEM PRODUCTS [Concomitant]
  3. ACETAMINOPHEN [Concomitant]

REACTIONS (7)
  - FATIGUE [None]
  - FEELING JITTERY [None]
  - INSOMNIA [None]
  - IRRITABILITY [None]
  - MUSCLE TIGHTNESS [None]
  - UNEVALUABLE EVENT [None]
  - VERTIGO [None]
